FAERS Safety Report 6308946-4 (Version None)
Quarter: 2009Q3

REPORT INFORMATION
  Report Type: 
  Country: None (occurrence: None)
  Receive Date: 20090813
  Receipt Date: 20090423
  Transmission Date: 20100115
  Serious: No
  Sender: FDA-Public Use
  Company Number: US-ALLERGAN-0905851US

PATIENT
  Age: 79 Year

DRUGS (1)
  1. COMBIGAN [Suspect]
     Indication: DRUG USE FOR UNKNOWN INDICATION
     Dosage: UNK, UNK
     Route: 047

REACTIONS (3)
  - BLEPHARITIS [None]
  - EYE INFLAMMATION [None]
  - EYE IRRITATION [None]
